FAERS Safety Report 19829662 (Version 1)
Quarter: 2021Q3

REPORT INFORMATION
  Report Type: Spontaneous
  Country: US (occurrence: US)
  Receive Date: 20210915
  Receipt Date: 20210915
  Transmission Date: 20211014
  Serious: Yes (Death, Hospitalization, Other)
  Sender: FDA-Public Use
  Company Number: US-AMGEN-USASP2021140102

PATIENT
  Age: 46 Year
  Sex: Female

DRUGS (2)
  1. RITUXIMAB. [Suspect]
     Active Substance: RITUXIMAB
     Indication: MULTIPLE SCLEROSIS
     Dosage: UNK
     Route: 065
  2. RITUXIMAB. [Suspect]
     Active Substance: RITUXIMAB
     Indication: OFF LABEL USE

REACTIONS (6)
  - Haemophagocytic lymphohistiocytosis [Fatal]
  - Leukocytosis [Not Recovered/Not Resolved]
  - Off label use [Unknown]
  - Steatohepatitis [Unknown]
  - Hypertriglyceridaemia [Unknown]
  - Pyrexia [Unknown]
